FAERS Safety Report 6211219-1 (Version None)
Quarter: 2009Q2

REPORT INFORMATION
  Report Type: 
  Country: None (occurrence: None)
  Receive Date: 20090602
  Receipt Date: 20090527
  Transmission Date: 20091009
  Serious: Yes (Other)
  Sender: FDA-Public Use
  Company Number: US-ALLERGAN-0904866US

PATIENT
  Age: 35 Year
  Sex: Female

DRUGS (8)
  1. BOTOX [Suspect]
     Indication: SKIN WRINKLING
     Dosage: 28 UNITS, SINGLE
     Route: 030
     Dates: start: 20081219, end: 20081219
  2. BOTOX [Suspect]
     Dosage: UNK, SINGLE
     Route: 030
     Dates: start: 20080502, end: 20080502
  3. BOTOX [Suspect]
     Dosage: UNK, SINGLE
     Route: 030
     Dates: start: 20080515, end: 20080515
  4. BOTOX [Suspect]
     Dosage: UNK, SINGLE
     Route: 030
     Dates: start: 20080905, end: 20080905
  5. CEPHALEXIN [Concomitant]
     Indication: URINARY TRACT INFECTION
  6. CEPHALEXIN [Concomitant]
     Indication: VAGINAL INFECTION
  7. DOXYCYCLINE [Concomitant]
     Indication: URINARY TRACT INFECTION
  8. DOXYCYCLINE [Concomitant]
     Indication: VAGINAL INFECTION

REACTIONS (8)
  - ASTHENIA [None]
  - DIZZINESS [None]
  - DRY MOUTH [None]
  - HYPOAESTHESIA [None]
  - INJECTION SITE PAIN [None]
  - INJECTION SITE RASH [None]
  - MENTAL IMPAIRMENT [None]
  - TACHYCARDIA [None]
